FAERS Safety Report 7655438-6 (Version None)
Quarter: 2011Q3

REPORT INFORMATION
  Report Type: 
  Country: None (occurrence: None)
  Receive Date: 20110804
  Receipt Date: 20110726
  Transmission Date: 20111222
  Serious: Yes (Hospitalization, Other)
  Sender: FDA-Public Use
  Company Number: US-JNJFOC-20110601263

PATIENT
  Sex: Male

DRUGS (8)
  1. ZOCOR [Concomitant]
     Route: 065
  2. RENAGEL [Concomitant]
     Route: 065
  3. CLONIDINE [Concomitant]
     Route: 065
  4. LABETALOL HCL [Concomitant]
     Route: 065
  5. RIDAL [Concomitant]
     Route: 065
  6. DOXIL [Suspect]
     Indication: MULTIPLE MYELOMA
     Route: 042
  7. EPOETIN ALFA [Concomitant]
     Dosage: M-W-T
     Route: 065
  8. PROCARDIA XL [Concomitant]
     Route: 065

REACTIONS (5)
  - FATIGUE [None]
  - HOSPITALISATION [None]
  - TREATMENT NONCOMPLIANCE [None]
  - PALMAR-PLANTAR ERYTHRODYSAESTHESIA SYNDROME [None]
  - GENERAL PHYSICAL HEALTH DETERIORATION [None]
